FAERS Safety Report 8908025 (Version 1)
Quarter: 2012Q4

REPORT INFORMATION
  Report Type: 
  Country: US (occurrence: US)
  Receive Date: 20121113
  Receipt Date: 20121113
  Transmission Date: 20130627
  Serious: No
  Sender: FDA-Public Use
  Company Number: US-AMGEN-USASP2012010125

PATIENT
  Age: 45 Year
  Sex: Male
  Weight: 78.01 kg

DRUGS (5)
  1. ENBREL [Suspect]
     Indication: PRODUCT USED FOR UNKNOWN INDICATION
     Dosage: 50 mg, qwk
  2. FELDENE [Concomitant]
  3. CENTRUM                            /06011801/ [Concomitant]
  4. GINGER                             /01646602/ [Concomitant]
  5. CALCIUM + VIT D [Concomitant]

REACTIONS (3)
  - Blood urine present [Unknown]
  - Vertigo [Unknown]
  - Folliculitis [Unknown]
